FAERS Safety Report 15169570 (Version 1)
Quarter: 2018Q3

REPORT INFORMATION
  Report Type: Spontaneous
  Country: US (occurrence: US)
  Receive Date: 20180720
  Receipt Date: 20180720
  Transmission Date: 20181010
  Serious: Yes (Hospitalization)
  Sender: FDA-Public Use
  Company Number: US-FRESENIUS MEDICAL CARE RENAL THERAPIES GROUP-FMC-1807-001307

PATIENT
  Sex: Male

DRUGS (7)
  1. RENVELA [Concomitant]
     Active Substance: SEVELAMER CARBONATE
  2. CALCITRIOL. [Concomitant]
     Active Substance: CALCITRIOL
  3. MIDODRINE [Concomitant]
     Active Substance: MIDODRINE
  4. PRAVASTATIN. [Concomitant]
     Active Substance: PRAVASTATIN
  5. CALCIUM ACETATE. [Concomitant]
     Active Substance: CALCIUM ACETATE
  6. DELFLEX WITH DEXTROSE 1.5% LOW MAGNESIUM LOW CALCIUM [Suspect]
     Active Substance: CALCIUM CHLORIDE\DEXTROSE\MAGNESIUM CHLORIDE\SODIUM CHLORIDE\SODIUM LACTATE
     Indication: END STAGE RENAL DISEASE
     Route: 033
  7. COUMADIN [Concomitant]
     Active Substance: WARFARIN SODIUM

REACTIONS (3)
  - Hypotension [Recovering/Resolving]
  - Drug dose omission [Unknown]
  - Asthenia [Recovering/Resolving]

NARRATIVE: CASE EVENT DATE: 20180709
